FAERS Safety Report 8240588-6 (Version None)
Quarter: 2012Q1

REPORT INFORMATION
  Report Type: 
  Country: None (occurrence: None)
  Receive Date: 20120328
  Receipt Date: 20120313
  Transmission Date: 20120608
  Serious: Yes (Disabling)
  Sender: FDA-Public Use
  Company Number: US-ROCHE-1052072

PATIENT
  Age: 57 Year
  Sex: Female

DRUGS (3)
  1. HERCEPTIN [Suspect]
     Indication: BREAST CANCER
     Route: 042
     Dates: start: 20100901, end: 20101201
  2. TAXOL [Concomitant]
     Indication: BREAST CANCER
     Route: 042
     Dates: start: 20100901, end: 20101201
  3. ADRIAMYCIN PFS [Concomitant]
     Indication: BREAST CANCER
     Route: 042
     Dates: start: 20100801, end: 20101001

REACTIONS (1)
  - CARDIAC DISORDER [None]
